FAERS Safety Report 7503698-4 (Version None)
Quarter: 2011Q2

REPORT INFORMATION
  Report Type: 
  Country: None (occurrence: None)
  Receive Date: 20110525
  Receipt Date: 20110517
  Transmission Date: 20111010
  Serious: No
  Sender: FDA-Public Use
  Company Number: US-US-EMD SERONO, INC.-231127J10USA

PATIENT
  Sex: Female
  Weight: 61 kg

DRUGS (4)
  1. ANTI-INFLAMMATORY MEDICATION [Concomitant]
  2. REBIF [Suspect]
     Indication: MULTIPLE SCLEROSIS
     Route: 058
     Dates: start: 20090618
  3. NAPROXEN (ALEVE) [Concomitant]
     Indication: PREMEDICATION
  4. ORTHO TRI-CYCLEN [Concomitant]
     Indication: CONTRACEPTION

REACTIONS (3)
  - CANDIDIASIS [None]
  - METRORRHAGIA [None]
  - SMEAR CERVIX ABNORMAL [None]
